FAERS Safety Report 25929838 (Version 1)
Quarter: 2025Q4

REPORT INFORMATION
  Report Type: Spontaneous
  Country: US (occurrence: None)
  Receive Date: 20251015
  Receipt Date: 20251015
  Transmission Date: 20260118
  Serious: No
  Sender: FDA-CTU
  Company Number: None

PATIENT
  Age: 66 Year
  Sex: Female
  Weight: 70.31 kg

DRUGS (7)
  1. ROSUVASTATIN [Suspect]
     Active Substance: ROSUVASTATIN
     Indication: Blood cholesterol
     Dosage: OTHER QUANTITY : 1 PILL;?OTHER FREQUENCY : DAILY THEN EVERY OTHER DAY;?
     Route: 048
     Dates: start: 20240507, end: 20250901
  2. Dofetilide Tikosyn [Concomitant]
  3. Metoprolol Toprol [Concomitant]
  4. Warfarin Coumadin [Concomitant]
  5. Rosuvastatin Crestor [Concomitant]
  6. VITAMINS [Concomitant]
     Active Substance: VITAMINS
  7. ZINC [Concomitant]
     Active Substance: ZINC

REACTIONS (12)
  - Myalgia [None]
  - Asthenia [None]
  - Muscular weakness [None]
  - Muscular weakness [None]
  - Musculoskeletal disorder [None]
  - Gait disturbance [None]
  - Brain fog [None]
  - Headache [None]
  - Memory impairment [None]
  - Abdominal pain upper [None]
  - Muscle spasms [None]
  - Muscle spasms [None]

NARRATIVE: CASE EVENT DATE: 20240515
